FAERS Safety Report 13988720 (Version 1)
Quarter: 2017Q3

REPORT INFORMATION
  Report Type: Spontaneous
  Country: US (occurrence: None)
  Receive Date: 20170919
  Receipt Date: 20170919
  Transmission Date: 20171128
  Serious: Yes (Life-Threatening, Hospitalization, Disabling)
  Sender: FDA-Public Use
  Company Number: None

PATIENT
  Sex: Female
  Weight: 72.57 kg

DRUGS (5)
  1. PANTOPROZOLE [Concomitant]
  2. CENTRUM SILVER [Concomitant]
     Active Substance: MINERALS\VITAMINS
  3. PAXIL [Concomitant]
     Active Substance: PAROXETINE HYDROCHLORIDE
  4. CHEMOTHERAPY DRUG W/ TAXOTERE [Suspect]
     Active Substance: DOCETAXEL
     Indication: BREAST CANCER
     Dates: start: 20161025, end: 20161025
  5. SIMVISTATIN [Concomitant]
     Active Substance: SIMVASTATIN

REACTIONS (6)
  - Heart rate increased [None]
  - Fatigue [None]
  - Intestinal perforation [None]
  - Asthenia [None]
  - Pain [None]
  - Infection [None]
